APPROVED DRUG PRODUCT: ERYTHROMYCIN LACTOBIONATE
Active Ingredient: ERYTHROMYCIN LACTOBIONATE
Strength: EQ 500MG BASE/VIAL
Dosage Form/Route: INJECTABLE;INJECTION
Application: A215290 | Product #001 | TE Code: AP
Applicant: NEXUS PHARMACEUTICALS LLC
Approved: Feb 14, 2022 | RLD: No | RS: No | Type: RX